FAERS Safety Report 4852349-6 (Version None)
Quarter: 2005Q4

REPORT INFORMATION
  Report Type: 
  Country: None (occurrence: None)
  Receive Date: 20051213
  Receipt Date: 20051103
  Transmission Date: 20060501
  Serious: Yes (Hospitalization)
  Sender: FDA-Public Use
  Company Number: PHRM2005FR02896

PATIENT
  Age: 28 Year
  Sex: Male
  Weight: 70 kg

DRUGS (5)
  1. DEPAKENE [Suspect]
     Dosage: 500 MG, TID
     Route: 048
     Dates: end: 20051006
  2. LIORESAL [Concomitant]
  3. JOSIR [Concomitant]
  4. DITROPAN                                /SCH/ [Concomitant]
  5. TRILEPTAL [Suspect]
     Indication: EPILEPSY
     Dosage: 3 DF DAILY
     Route: 048
     Dates: start: 20050927, end: 20051007

REACTIONS (10)
  - DEPRESSED LEVEL OF CONSCIOUSNESS [None]
  - DRUG INTERACTION [None]
  - ELECTROENCEPHALOGRAM ABNORMAL [None]
  - ENCEPHALOPATHY [None]
  - GLASGOW COMA SCALE ABNORMAL [None]
  - GRAND MAL CONVULSION [None]
  - HYPERAMMONAEMIA [None]
  - INTUBATION [None]
  - PYREXIA [None]
  - SOMNOLENCE [None]
